FAERS Safety Report 4884300-7 (Version None)
Quarter: 2005Q4

REPORT INFORMATION
  Report Type: 
  Country: None (occurrence: None)
  Receive Date: 20051201
  Receipt Date: 20050823
  Transmission Date: 20060501
  Serious: No
  Sender: FDA-Public Use
  Company Number: 2005PV001644

PATIENT
  Age: 54 Year
  Sex: Female
  Weight: 111.1313 kg

DRUGS (10)
  1. BYETTA [Suspect]
     Indication: DIABETES MELLITUS NON-INSULIN-DEPENDENT
     Dosage: 5 MCG; BID; SC
     Route: 058
     Dates: start: 20050101
  2. FORTAMET [Concomitant]
  3. ACTOS [Concomitant]
  4. INDERAL [Concomitant]
  5. PREVACID [Concomitant]
  6. MOBIC [Concomitant]
  7. TRIAMTERENE [Concomitant]
  8. HYDROCHLOROTHIAZIDE [Concomitant]
  9. CELEXA [Concomitant]
  10. OGEN [Concomitant]

REACTIONS (6)
  - DECREASED APPETITE [None]
  - DYSPEPSIA [None]
  - EARLY SATIETY [None]
  - HEADACHE [None]
  - HYPERHIDROSIS [None]
  - NAUSEA [None]
